FAERS Safety Report 14257023 (Version 2)
Quarter: 2018Q1

REPORT INFORMATION
  Report Type: Spontaneous
  Country: CA (occurrence: CA)
  Receive Date: 20171206
  Receipt Date: 20180123
  Transmission Date: 20180508
  Serious: Yes (Hospitalization)
  Sender: FDA-Public Use
  Company Number: CA-HLSUS-2017-CA-001242

PATIENT
  Age: 62 Year
  Sex: Male

DRUGS (2)
  1. CLOZARIL [Suspect]
     Active Substance: CLOZAPINE
     Dosage: 475 MG
     Route: 048
     Dates: start: 20171130, end: 20171130
  2. LITHIUM. [Suspect]
     Active Substance: LITHIUM
     Dosage: 200 MG
     Dates: start: 20171130, end: 20171130

REACTIONS (3)
  - Seizure [Unknown]
  - Diarrhoea [Unknown]
  - Accidental exposure to product [Unknown]

NARRATIVE: CASE EVENT DATE: 20171130
